FAERS Safety Report 7669448-6 (Version None)
Quarter: 2011Q3

REPORT INFORMATION
  Report Type: 
  Country: None (occurrence: None)
  Receive Date: 20110808
  Receipt Date: 20110725
  Transmission Date: 20111222
  Serious: Yes (Hospitalization)
  Sender: FDA-Public Use
  Company Number: PT-US-EMD SERONO, INC.-7072634

PATIENT
  Sex: Female
  Weight: 60 kg

DRUGS (2)
  1. REBIF [Suspect]
     Indication: MULTIPLE SCLEROSIS
     Dates: start: 20100205, end: 20100811
  2. CLADRIBINE [Suspect]
     Indication: MULTIPLE SCLEROSIS
     Dates: end: 20100215

REACTIONS (2)
  - HYPOTHYROIDISM [None]
  - THYROIDITIS [None]
